FAERS Safety Report 4471072-3 (Version None)
Quarter: 2004Q4

REPORT INFORMATION
  Report Type: 
  Country: None (occurrence: None)
  Receive Date: 20041011
  Receipt Date: 20040927
  Transmission Date: 20050328
  Serious: Yes (Disabling, Other)
  Sender: FDA-Public Use
  Company Number: DEWYE066827SEP04

PATIENT
  Sex: Male
  Weight: 55.5 kg

DRUGS (2)
  1. ENBREL [Suspect]
     Indication: JUVENILE ARTHRITIS
     Route: 058
  2. IBUPROFEN [Concomitant]
     Route: 048

REACTIONS (2)
  - MACULAR OEDEMA [None]
  - PAPILLOEDEMA [None]
